FAERS Safety Report 24194277 (Version 1)
Quarter: 2024Q3

REPORT INFORMATION
  Report Type: Spontaneous
  Country: FR (occurrence: FR)
  Receive Date: 20240809
  Receipt Date: 20240809
  Transmission Date: 20241017
  Serious: Yes (Hospitalization)
  Sender: TEVA
  Company Number: None

PATIENT
  Age: 45 Year
  Sex: Female
  Weight: 60 kg

DRUGS (5)
  1. PREDNISOLONE [Interacting]
     Active Substance: PREDNISOLONE
     Indication: Metastatic malignant melanoma
     Dosage: PREDNISOLONE TEVA, SCORED EFFERVESCENT TABLET
     Route: 048
     Dates: start: 202306
  2. KAYEXALATE [Interacting]
     Active Substance: SODIUM POLYSTYRENE SULFONATE
     Indication: Hyperkalaemia
     Route: 048
     Dates: start: 20240201, end: 20240406
  3. BRAFTOVI [Suspect]
     Active Substance: ENCORAFENIB
     Indication: Metastatic malignant melanoma
     Route: 048
     Dates: start: 20220822
  4. MEKTOVI [Suspect]
     Active Substance: BINIMETINIB
     Indication: Metastatic malignant melanoma
     Route: 048
     Dates: start: 20220822
  5. ZIRABEV [Interacting]
     Active Substance: BEVACIZUMAB-BVZR
     Indication: Metastatic malignant melanoma
     Dosage: TIME INTERVAL: CYCLICAL
     Route: 042
     Dates: start: 20230710, end: 20240311

REACTIONS (2)
  - Large intestine perforation [Recovered/Resolved with Sequelae]
  - Drug interaction [Recovered/Resolved with Sequelae]

NARRATIVE: CASE EVENT DATE: 20240101
